FAERS Safety Report 17274166 (Version 1)
Quarter: 2020Q1

REPORT INFORMATION
  Report Type: Report from Study
  Country: US (occurrence: US)
  Receive Date: 20200115
  Receipt Date: 20200115
  Transmission Date: 20200409
  Serious: Yes (Death, Life-Threatening, Hospitalization, Other)
  Sender: FDA-Public Use
  Company Number: US-009507513-1912USA006155

PATIENT
  Age: 64 Year
  Sex: Male

DRUGS (11)
  1. ELIQUIS [Concomitant]
     Active Substance: APIXABAN
     Indication: THROMBOSIS PROPHYLAXIS
  2. DEXAMETHASONE. [Concomitant]
     Active Substance: DEXAMETHASONE
     Dosage: 2 MILLIGRAM, BID
     Route: 048
  3. ELIQUIS [Concomitant]
     Active Substance: APIXABAN
     Indication: THROMBOSIS PROPHYLAXIS
     Dosage: 5 MILLIGRAM, BID
     Route: 048
  4. KEYTRUDA [Suspect]
     Active Substance: PEMBROLIZUMAB
     Indication: NON-SMALL CELL LUNG CANCER METASTATIC
     Dosage: 200 MILLIGRAM, Q21D
     Route: 042
     Dates: start: 20190802, end: 20191025
  5. OXYCODONE [Concomitant]
     Active Substance: OXYCODONE
     Dosage: 15 MILLIGRAM = 3 TAB, PRN, Q6H
     Route: 048
  6. ALIMTA [Suspect]
     Active Substance: PEMETREXED DISODIUM
     Indication: NON-SMALL CELL LUNG CANCER METASTATIC
     Dosage: 900 MILLIGRAM, Q21D
     Route: 042
     Dates: start: 20190802, end: 20191025
  7. ALBUTEROL. [Concomitant]
     Active Substance: ALBUTEROL
     Dosage: 90 MCG/INH INHALATION AEROSOL
  8. CLEARLAX [Concomitant]
     Active Substance: POLYETHYLENE GLYCOL 3350
     Dosage: 17 MILLIGRAM, DAILY
     Route: 048
  9. OXYCODONE [Concomitant]
     Active Substance: OXYCODONE
     Dosage: 30 MILLIGRAM = 3 TAB, PRN, Q4H
     Route: 048
  10. EMEND [Suspect]
     Active Substance: APREPITANT
     Dosage: UNK
     Route: 048
  11. ONDANSETRON [Concomitant]
     Active Substance: ONDANSETRON
     Dosage: 8 MILLIGRAM, PRN, Q8H
     Route: 048

REACTIONS (20)
  - Protein total decreased [Unknown]
  - Spinal compression fracture [Unknown]
  - Limb injury [Recovering/Resolving]
  - Blood calcium decreased [Unknown]
  - Ileus [Recovering/Resolving]
  - Proteinuria [Unknown]
  - Red blood cells urine [Unknown]
  - Platelet count decreased [Unknown]
  - Blood albumin decreased [Unknown]
  - Blood creatine phosphokinase decreased [Unknown]
  - Liver injury [Fatal]
  - Diabetes mellitus [Unknown]
  - Administration site extravasation [Recovering/Resolving]
  - Blood chloride decreased [Unknown]
  - Blood creatine decreased [Unknown]
  - Anaemia [Unknown]
  - Hyponatraemia [Unknown]
  - Leukopenia [Unknown]
  - White blood cells urine positive [Unknown]
  - Wound infection staphylococcal [Recovering/Resolving]

NARRATIVE: CASE EVENT DATE: 2019
